FAERS Safety Report 21469297 (Version 4)
Quarter: 2023Q1

REPORT INFORMATION
  Report Type: Spontaneous
  Country: US (occurrence: US)
  Receive Date: 20221018
  Receipt Date: 20230118
  Transmission Date: 20230418
  Serious: No
  Sender: FDA-Public Use
  Company Number: US-SA-SAC20221013000857

PATIENT
  Age: 4 Year
  Sex: Female
  Weight: 47 kg

DRUGS (2)
  1. LUMIZYME [Suspect]
     Active Substance: ALGLUCOSIDASE ALFA
     Indication: Glycogen storage disease type II
     Dosage: 2000 MG, QW
     Route: 042
     Dates: start: 20170307, end: 20221019
  2. LUMIZYME [Suspect]
     Active Substance: ALGLUCOSIDASE ALFA
     Dosage: 2000 MG, QW
     Route: 042
     Dates: start: 2022

REACTIONS (4)
  - Weight decreased [Unknown]
  - Blood pressure fluctuation [Unknown]
  - Illness [Unknown]
  - Inappropriate schedule of product administration [Unknown]

NARRATIVE: CASE EVENT DATE: 20170307
